FAERS Safety Report 9315301 (Version 1)
Quarter: 2013Q2

REPORT INFORMATION
  Report Type: Report from Study
  Country: CA (occurrence: CA)
  Receive Date: 20130529
  Receipt Date: 20130529
  Transmission Date: 20140414
  Serious: Yes (Life-Threatening, Hospitalization)
  Sender: FDA-Public Use
  Company Number: CA-PFIZER INC-2013160761

PATIENT
  Age: 59 Year
  Sex: Male
  Weight: 85.6 kg

DRUGS (2)
  1. SUTENT [Suspect]
     Indication: GLIOBLASTOMA
     Dosage: 25 MG, 1X/DAY
     Dates: start: 20130326, end: 20130513
  2. TEMOZOLOMIDE [Suspect]
     Indication: GLIOBLASTOMA
     Dosage: 75 MG/M2 ONCE DAILY
     Dates: start: 20130402, end: 20130513

REACTIONS (1)
  - Thrombocytopenia [Not Recovered/Not Resolved]
